FAERS Safety Report 17317215 (Version 1)
Quarter: 2020Q1

REPORT INFORMATION
  Report Type: Spontaneous
  Country: CA (occurrence: CA)
  Receive Date: 20200124
  Receipt Date: 20200124
  Transmission Date: 20200409
  Serious: Yes (Other)
  Sender: FDA-Public Use
  Company Number: CA-SHIRE-CA202002137

PATIENT

DRUGS (8)
  1. HUMAN NORMAL IMMUNOGLOBULIN [Suspect]
     Active Substance: HUMAN IMMUNOGLOBULIN G
     Indication: MYOPATHY
     Route: 065
  2. METHOTREXATE. [Suspect]
     Active Substance: METHOTREXATE
     Indication: MYOPATHY
     Route: 065
  3. AZATHIOPRINE. [Suspect]
     Active Substance: AZATHIOPRINE
     Indication: MYOPATHY
     Dosage: UNK
     Route: 065
  4. METHOTREXATE. [Suspect]
     Active Substance: METHOTREXATE
     Indication: MYOSITIS
  5. PREDNISONE. [Suspect]
     Active Substance: PREDNISONE
     Indication: MYOSITIS
  6. HUMAN NORMAL IMMUNOGLOBULIN [Suspect]
     Active Substance: HUMAN IMMUNOGLOBULIN G
     Indication: MYOSITIS
     Dosage: UNK
     Route: 042
  7. AZATHIOPRINE. [Suspect]
     Active Substance: AZATHIOPRINE
     Indication: MYOSITIS
  8. PREDNISONE. [Suspect]
     Active Substance: PREDNISONE
     Indication: MYOPATHY
     Route: 065

REACTIONS (5)
  - Immune-mediated myositis [Unknown]
  - Myopathy [Unknown]
  - Intentional product use issue [Unknown]
  - Disease recurrence [Unknown]
  - Off label use [Unknown]
